FAERS Safety Report 12887422 (Version 2)
Quarter: 2016Q4

REPORT INFORMATION
  Report Type: Report from Study
  Country: US (occurrence: US)
  Receive Date: 20161026
  Receipt Date: 20161104
  Transmission Date: 20170207
  Serious: Yes (Hospitalization)
  Sender: FDA-Public Use
  Company Number: US-ACTELION-A-US2016-130510

PATIENT
  Age: 62 Year
  Sex: Male

DRUGS (16)
  1. VELETRI [Suspect]
     Active Substance: EPOPROSTENOL
     Dosage: 10 NG/KG, PER MIN
     Route: 042
     Dates: start: 20160519
  2. ONDANSETRON [Concomitant]
     Active Substance: ONDANSETRON
  3. REGLAN [Concomitant]
     Active Substance: METOCLOPRAMIDE HYDROCHLORIDE
  4. VELETRI [Suspect]
     Active Substance: EPOPROSTENOL
     Indication: PULMONARY HYPERTENSION
     Dosage: 5 NG/KG, PER MIN
     Route: 042
     Dates: start: 20160119
  5. RIOCIGUAT [Concomitant]
     Active Substance: RIOCIGUAT
  6. MORPHINE [Concomitant]
     Active Substance: MORPHINE
  7. COREG [Concomitant]
     Active Substance: CARVEDILOL
  8. VELETRI [Suspect]
     Active Substance: EPOPROSTENOL
     Dosage: 14 NG/KG, PER MIN
     Route: 042
     Dates: start: 20160519
  9. GLYCOLAX [Concomitant]
     Active Substance: POLYETHYLENE GLYCOL 3350
  10. VELETRI [Suspect]
     Active Substance: EPOPROSTENOL
     Dosage: 9 NG/KG, PER MIN
     Route: 042
  11. LOVENOX [Concomitant]
     Active Substance: ENOXAPARIN SODIUM
  12. DELTASONE [Concomitant]
     Active Substance: PREDNISONE
  13. COUMADIN [Concomitant]
     Active Substance: WARFARIN SODIUM
  14. ALBUTEROL SULFATE AND IPRATROPIUM BROMIDE [Concomitant]
     Active Substance: ALBUTEROL SULFATE\IPRATROPIUM BROMIDE
  15. SPIRIVA [Concomitant]
     Active Substance: TIOTROPIUM BROMIDE MONOHYDRATE
  16. COLACE [Concomitant]
     Active Substance: DOCUSATE SODIUM

REACTIONS (17)
  - Influenza like illness [Unknown]
  - Bronchitis [Recovered/Resolved]
  - Abdominal pain upper [Not Recovered/Not Resolved]
  - Gallbladder operation [Recovering/Resolving]
  - Hypotension [Not Recovered/Not Resolved]
  - Blood pressure abnormal [Unknown]
  - Nausea [Unknown]
  - Malaise [Recovered/Resolved]
  - Cough [Not Recovered/Not Resolved]
  - Pain in jaw [Unknown]
  - Abdominal discomfort [Unknown]
  - Impaired healing [Unknown]
  - Abdominal pain [Unknown]
  - Feeling abnormal [Recovered/Resolved]
  - Chills [Not Recovered/Not Resolved]
  - Headache [Unknown]
  - Flushing [Unknown]

NARRATIVE: CASE EVENT DATE: 20160317
